FAERS Safety Report 5359245-9 (Version None)
Quarter: 2007Q2

REPORT INFORMATION
  Report Type: 
  Country: None (occurrence: None)
  Receive Date: 20070615
  Receipt Date: 20070611
  Transmission Date: 20071010
  Serious: Yes (Hospitalization)
  Sender: FDA-Public Use
  Company Number: IT-SANOFI-SYNTHELABO-A06200700257

PATIENT
  Sex: Female

DRUGS (8)
  1. VASERETIC [Concomitant]
     Indication: DRUG USE FOR UNKNOWN INDICATION
     Route: 048
     Dates: start: 20070101, end: 20070524
  2. NORVASC [Concomitant]
     Indication: DRUG USE FOR UNKNOWN INDICATION
     Route: 048
     Dates: start: 20070101, end: 20070524
  3. PLAVIX [Suspect]
     Indication: CORONARY ANGIOPLASTY
     Route: 048
     Dates: start: 20070522, end: 20070522
  4. SEQUACOR [Concomitant]
     Indication: PROPHYLAXIS
     Dosage: UNK
     Route: 048
  5. LANSOX [Concomitant]
     Indication: PROPHYLAXIS AGAINST GASTROINTESTINAL ULCER
     Dosage: UNK
     Route: 065
  6. ASPIRIN [Concomitant]
     Indication: ANTIPLATELET THERAPY
     Dosage: UNK
     Route: 065
  7. TORVAST [Concomitant]
     Indication: HYPERCHOLESTEROLAEMIA
     Route: 048
  8. UNIPRIL [Concomitant]
     Indication: HYPERTENSION
     Route: 048

REACTIONS (1)
  - RASH VESICULAR [None]
